FAERS Safety Report 6253825-4 (Version None)
Quarter: 2009Q2

REPORT INFORMATION
  Report Type: 
  Country: None (occurrence: None)
  Receive Date: 20090630
  Receipt Date: 20090630
  Transmission Date: 20091009
  Serious: Yes (Life-Threatening, Hospitalization)
  Sender: FDA-Public Use
  Company Number: None

PATIENT
  Age: 52 Year
  Sex: Female
  Weight: 94.8018 kg

DRUGS (1)
  1. ZOLPIDEM [Suspect]
     Indication: INSOMNIA
     Dosage: 1 TABLET 1X DAILY PO
     Route: 048
     Dates: start: 20081001, end: 20090629

REACTIONS (12)
  - FACIAL BONES FRACTURE [None]
  - FALL [None]
  - HAND FRACTURE [None]
  - JOINT INJURY [None]
  - LIGAMENT DISORDER [None]
  - MUSCLE RUPTURE [None]
  - NERVOUS SYSTEM DISORDER [None]
  - PRODUCT SUBSTITUTION ISSUE [None]
  - SKULL FRACTURE [None]
  - SOFT TISSUE INJURY [None]
  - THINKING ABNORMAL [None]
  - WRONG DRUG ADMINISTERED [None]
